FAERS Safety Report 6333421-0 (Version None)
Quarter: 2009Q3

REPORT INFORMATION
  Report Type: 
  Country: None (occurrence: None)
  Receive Date: 20090828
  Receipt Date: 20090817
  Transmission Date: 20100115
  Serious: Yes (Hospitalization)
  Sender: FDA-Public Use
  Company Number: US-ELI_LILLY_AND_COMPANY-US200907001585

PATIENT
  Age: 54 Year
  Sex: Male

DRUGS (10)
  1. CYMBALTA [Suspect]
     Indication: MAJOR DEPRESSION
     Dosage: 60 MG, EACH MORNING
  2. CYMBALTA [Suspect]
     Dosage: 30 MG, EACH EVENING
  3. PROTONIX [Concomitant]
     Dosage: 40 MG, UNK
  4. INSULIN [Concomitant]
  5. SOMA [Concomitant]
     Dosage: 350 MG, 3/D
  6. DILAUDID [Concomitant]
     Dosage: 4 MG, EACH MORNING
  7. DILAUDID [Concomitant]
     Dosage: 8 MG, 2/D
  8. HYDROCHLOROTHIAZIDE [Concomitant]
     Dosage: 25 MG, DAILY (1/D)
  9. ASPIRIN [Concomitant]
     Dosage: 81 MG, DAILY (1/D)
  10. CRESTOR [Concomitant]
     Dosage: 250 MG, 2/D

REACTIONS (2)
  - SEROTONIN SYNDROME [None]
  - TREMOR [None]
